FAERS Safety Report 21044050 (Version 1)
Quarter: 2022Q3

REPORT INFORMATION
  Report Type: Spontaneous
  Country: US (occurrence: None)
  Receive Date: 20220702
  Receipt Date: 20220702
  Transmission Date: 20221026
  Serious: No
  Sender: FDA-Public Use
  Company Number: None

PATIENT
  Age: 78 Year
  Sex: Male
  Weight: 95.85 kg

DRUGS (28)
  1. RILUZOLE [Suspect]
     Active Substance: RILUZOLE
     Dosage: 1 TABLET TWICE A DAY ORAL?
     Route: 048
     Dates: start: 20220314, end: 20220621
  2. PACE MAKER [Concomitant]
  3. Hydrochlorothiaz [Concomitant]
  4. FENOFIBRATE [Concomitant]
     Active Substance: FENOFIBRATE
  5. OMEPRAZOLE [Concomitant]
     Active Substance: OMEPRAZOLE
  6. LEVOTHYROXINE [Concomitant]
     Active Substance: LEVOTHYROXINE
  7. HYDROCHLOROTHIAZIDE\LOSARTAN [Concomitant]
     Active Substance: HYDROCHLOROTHIAZIDE\LOSARTAN
  8. HYDRALAZINE [Concomitant]
     Active Substance: HYDRALAZINE HYDROCHLORIDE
  9. TAMSULOSIN HYDROCHLORIDE [Concomitant]
     Active Substance: TAMSULOSIN HYDROCHLORIDE
  10. MYRBETRIQ [Concomitant]
     Active Substance: MIRABEGRON
  11. Clotrimazole-Betamethasone Privigen [Concomitant]
  12. AMOXICILLIN [Concomitant]
     Active Substance: AMOXICILLIN
  13. OXYBUTYNIN [Concomitant]
     Active Substance: OXYBUTYNIN
  14. CYCLOSPORINE (Restasis) [Concomitant]
  15. Hydroxychoroquine [Concomitant]
  16. PILOCARPINE [Concomitant]
     Active Substance: PILOCARPINE
  17. GLUCOSAMINE [Concomitant]
     Active Substance: GLUCOSAMINE
  18. CHONDROITIN [Concomitant]
     Active Substance: CHONDROITIN
  19. MINERALS\VITAMINS [Concomitant]
     Active Substance: MINERALS\VITAMINS
  20. ALPHA LIPOIC ACID [Concomitant]
     Active Substance: .ALPHA.-LIPOIC ACID
  21. CALCIUM CARBONATE\CHOLECALCIFEROL [Concomitant]
     Active Substance: CALCIUM CARBONATE\CHOLECALCIFEROL
  22. MAGNESIUM [Concomitant]
     Active Substance: MAGNESIUM
  23. ALIGN [Concomitant]
     Active Substance: BIFIDOBACTERIUM LONGUM SUBSP. INFANTIS
  24. TYLENOL [Concomitant]
     Active Substance: ACETAMINOPHEN
  25. Sarna Lotion [Concomitant]
  26. Ponaris [Concomitant]
  27. ACT Drymouth mouthwash [Concomitant]
  28. VITAMIN B1 [Concomitant]
     Active Substance: THIAMINE HYDROCHLORIDE

REACTIONS (1)
  - Abnormal dreams [None]

NARRATIVE: CASE EVENT DATE: 20220621
